FAERS Safety Report 17907807 (Version 2)
Quarter: 2020Q2

REPORT INFORMATION
  Report Type: Spontaneous
  Country: DE (occurrence: DE)
  Receive Date: 20200617
  Receipt Date: 20200619
  Transmission Date: 20200714
  Serious: Yes (Life-Threatening, Hospitalization)
  Sender: FDA-Public Use
  Company Number: DE-B.I. PHARMACEUTICALS,INC./RIDGEFIELD-2020-MI-030428

PATIENT
  Sex: Male

DRUGS (1)
  1. VARGATEF [Suspect]
     Active Substance: NINTEDANIB
     Indication: IDIOPATHIC PULMONARY FIBROSIS
     Route: 065

REACTIONS (3)
  - Off label use [Unknown]
  - Loss of consciousness [Unknown]
  - Surgery [Unknown]
